FAERS Safety Report 22203120 (Version 1)
Quarter: 2023Q2

REPORT INFORMATION
  Report Type: Spontaneous
  Country: US (occurrence: US)
  Receive Date: 20230412
  Receipt Date: 20230412
  Transmission Date: 20230721
  Serious: Yes (Hospitalization)
  Sender: FDA-Public Use
  Company Number: US-SPECGX-T202300946

PATIENT
  Age: 54 Year
  Sex: Female

DRUGS (1)
  1. FENTANYL CITRATE [Suspect]
     Active Substance: FENTANYL CITRATE
     Indication: Product used for unknown indication
     Dosage: UNK
     Route: 065

REACTIONS (9)
  - Brain oedema [Unknown]
  - Encephalopathy [Unknown]
  - Hydrocephalus [Unknown]
  - Decompressive craniectomy [Unknown]
  - Tracheostomy [Unknown]
  - Gastrostomy [Unknown]
  - Encephalomalacia [Unknown]
  - Overdose [Unknown]
  - Unresponsive to stimuli [Unknown]
